FAERS Safety Report 8018050-5 (Version None)
Quarter: 2012Q1

REPORT INFORMATION
  Report Type: 
  Country: None (occurrence: None)
  Receive Date: 20120103
  Receipt Date: 20111228
  Transmission Date: 20120608
  Serious: Yes (Other)
  Sender: FDA-Public Use
  Company Number: US-JNJFOC-20111009481

PATIENT
  Sex: Female
  Weight: 76.2 kg

DRUGS (11)
  1. DIOVAN [Concomitant]
     Indication: HYPERTENSION
     Route: 048
     Dates: start: 20030101
  2. CALCIUM CITRATE WITH VITAMIN D [Concomitant]
     Indication: NUTRITIONAL SUPPORT
  3. CRESTOR [Concomitant]
     Indication: BLOOD CHOLESTEROL INCREASED
     Route: 048
     Dates: start: 20080101
  4. PROTONIX [Concomitant]
     Indication: GASTROOESOPHAGEAL REFLUX DISEASE
     Route: 048
     Dates: start: 20040101
  5. METHOTREXATE [Concomitant]
     Indication: RHEUMATOID ARTHRITIS
     Route: 048
  6. VITAMIN D [Concomitant]
     Indication: NUTRITIONAL SUPPORT
  7. REMICADE [Suspect]
     Indication: RHEUMATOID ARTHRITIS
     Route: 042
     Dates: start: 20090701
  8. LEVOTHYROXINE SODIUM [Concomitant]
     Indication: THYROID DISORDER
     Route: 048
     Dates: start: 19760101
  9. FOLIC ACID [Concomitant]
     Route: 048
  10. MOBIC [Concomitant]
     Indication: RHEUMATOID ARTHRITIS
     Route: 048
  11. TRIAMTERENE AND HYDROCHLOROTHIAZIDE [Concomitant]
     Indication: HYPERTENSION
     Route: 048
     Dates: start: 20030101

REACTIONS (4)
  - OSTEOPENIA [None]
  - STRESS FRACTURE [None]
  - SINUSITIS [None]
  - NERVE INJURY [None]
